FAERS Safety Report 4803170-6 (Version None)
Quarter: 2005Q4

REPORT INFORMATION
  Report Type: 
  Country: None (occurrence: None)
  Receive Date: 20051019
  Receipt Date: 20050701
  Transmission Date: 20060501
  Serious: Yes (Hospitalization)
  Sender: FDA-Public Use
  Company Number: US-MERCK-0507USA00466

PATIENT
  Age: 68 Year
  Sex: Male
  Weight: 99 kg

DRUGS (7)
  1. VIOXX [Suspect]
     Indication: BACK PAIN
     Route: 048
     Dates: start: 20020101, end: 20040101
  2. VIOXX [Suspect]
     Indication: PAIN IN EXTREMITY
     Route: 048
     Dates: start: 20020101, end: 20040101
  3. CELEBREX [Concomitant]
     Indication: BACK PAIN
     Route: 065
     Dates: start: 20020101
  4. CELEBREX [Concomitant]
     Indication: PAIN IN EXTREMITY
     Route: 065
     Dates: start: 20020101
  5. ASPIRIN [Concomitant]
     Route: 065
     Dates: start: 19900101, end: 20050101
  6. TERAZOSIN HYDROCHLORIDE [Concomitant]
     Indication: PROSTATIC DISORDER
     Route: 065
  7. TEMAZEPAM [Concomitant]
     Indication: INSOMNIA
     Route: 065

REACTIONS (4)
  - ASBESTOSIS [None]
  - BLOOD CHOLESTEROL INCREASED [None]
  - CEREBROVASCULAR ACCIDENT [None]
  - INTERVERTEBRAL DISC INJURY [None]
